FAERS Safety Report 6126099-2 (Version None)
Quarter: 2009Q1

REPORT INFORMATION
  Report Type: 
  Country: None (occurrence: None)
  Receive Date: 20090320
  Receipt Date: 20090313
  Transmission Date: 20090719
  Serious: Yes (Hospitalization)
  Sender: FDA-Public Use
  Company Number: A0615767A

PATIENT
  Sex: Female

DRUGS (8)
  1. VALTREX [Suspect]
     Indication: GENITAL HERPES
     Dosage: 500MG PER DAY
     Route: 048
  2. VITAMIN [Concomitant]
  3. HERBS [Concomitant]
  4. LEXAPRO [Concomitant]
  5. NAPROXEN [Concomitant]
  6. RITUXAN [Concomitant]
  7. LEVOTHYROXINE [Concomitant]
  8. ZOVIRAX [Concomitant]
     Route: 061

REACTIONS (16)
  - ABDOMINAL DISTENSION [None]
  - ABDOMINAL PAIN [None]
  - BLADDER DISCOMFORT [None]
  - BLADDER DISORDER [None]
  - BLADDER PAIN [None]
  - BLOOD URINE PRESENT [None]
  - CYSTITIS NONINFECTIVE [None]
  - DIZZINESS [None]
  - EXPIRED DRUG ADMINISTERED [None]
  - LOSS OF CONSCIOUSNESS [None]
  - MICTURITION URGENCY [None]
  - NAUSEA [None]
  - NEPHRITIS [None]
  - PAIN [None]
  - POLLAKIURIA [None]
  - URINARY INCONTINENCE [None]
